FAERS Safety Report 10174702 (Version 1)
Quarter: 2014Q2

REPORT INFORMATION
  Report Type: Spontaneous
  Country: US (occurrence: None)
  Receive Date: 20140514
  Receipt Date: 20140514
  Transmission Date: 20141212
  Serious: Yes (Other)
  Sender: FDA-Public Use
  Company Number: None

PATIENT
  Age: 68 Year
  Sex: Female
  Weight: 65.77 kg

DRUGS (1)
  1. XARELTO [Suspect]
     Indication: HIP ARTHROPLASTY
     Dosage: ONE PILL EACH DAY ONCE DAILY
     Dates: start: 20140408, end: 20140411

REACTIONS (5)
  - Rash generalised [None]
  - Pruritus [None]
  - Erythema [None]
  - Throat tightness [None]
  - Loss of consciousness [None]
